FAERS Safety Report 5339399-0 (Version None)
Quarter: 2007Q2

REPORT INFORMATION
  Report Type: 
  Country: None (occurrence: None)
  Receive Date: 20070322
  Receipt Date: 20061129
  Transmission Date: 20071010
  Serious: Yes (Other)
  Sender: FDA-Public Use
  Company Number: 200613985BCC

PATIENT
  Age: 63 Year
  Sex: Male
  Weight: 111.1313 kg

DRUGS (4)
  1. ALEVE (CAPLET) [Suspect]
     Indication: HEADACHE
     Dosage: 440 MG, ONCE, ORAL
     Route: 048
     Dates: start: 20060917
  2. CELEBREX [Suspect]
     Dosage: 220 MG, QD
  3. CLARITIN-D [Concomitant]
  4. NEXIUM [Concomitant]

REACTIONS (12)
  - CHEST DISCOMFORT [None]
  - CHEST PAIN [None]
  - CONVULSION [None]
  - ERYTHEMA [None]
  - HYPERHIDROSIS [None]
  - HYPOTENSION [None]
  - LOSS OF CONSCIOUSNESS [None]
  - NASOPHARYNGITIS [None]
  - PHARYNGEAL OEDEMA [None]
  - SPEECH DISORDER [None]
  - SYNCOPE [None]
  - VISION BLURRED [None]
